FAERS Safety Report 23963594 (Version 2)
Quarter: 2024Q4

REPORT INFORMATION
  Report Type: Spontaneous
  Country: IN (occurrence: IN)
  Receive Date: 20240611
  Receipt Date: 20241211
  Transmission Date: 20250114
  Serious: Yes (Other)
  Sender: SANDOZ
  Company Number: IN-002147023-NVSC2024IN120559

PATIENT
  Sex: Male

DRUGS (2)
  1. MYFORTIC [Suspect]
     Active Substance: MYCOPHENOLATE SODIUM
     Indication: Renal transplant
     Dosage: 360 MG, BID
     Route: 048
     Dates: start: 20220911
  2. TACROLIMUS [Suspect]
     Active Substance: TACROLIMUS
     Indication: Renal transplant
     Dosage: 1.5 MG, BID
     Route: 048
     Dates: start: 20220911

REACTIONS (7)
  - Glaucoma [Unknown]
  - Cataract [Unknown]
  - Hepatic steatosis [Unknown]
  - Diastolic dysfunction [Unknown]
  - Ischaemia [Unknown]
  - Cluster headache [Unknown]
  - Hyperuricaemia [Unknown]
